FAERS Safety Report 19629830 (Version 3)
Quarter: 2023Q1

REPORT INFORMATION
  Report Type: Spontaneous
  Country: US (occurrence: US)
  Receive Date: 20210728
  Receipt Date: 20230209
  Transmission Date: 20230417
  Serious: Yes (Other)
  Sender: FDA-Public Use
  Company Number: US-BIOGEN-2021BI01031386

PATIENT
  Sex: Male

DRUGS (4)
  1. TECFIDERA [Suspect]
     Active Substance: DIMETHYL FUMARATE
     Indication: Multiple sclerosis
     Route: 050
     Dates: start: 20150311, end: 20161202
  2. TECFIDERA [Suspect]
     Active Substance: DIMETHYL FUMARATE
     Route: 050
  3. VITAMIN D [Concomitant]
     Active Substance: VITAMIN D NOS
     Indication: Product used for unknown indication
     Route: 050
  4. ALLEGRA ALLERGY [Concomitant]
     Active Substance: FEXOFENADINE HYDROCHLORIDE
     Indication: Product used for unknown indication
     Route: 050

REACTIONS (9)
  - Colon cancer stage III [Recovered/Resolved]
  - Weight decreased [Unknown]
  - Trigeminal neuralgia [Not Recovered/Not Resolved]
  - Multiple sclerosis [Unknown]
  - Gait disturbance [Unknown]
  - Anal incontinence [Unknown]
  - Confusional state [Unknown]
  - Frustration tolerance decreased [Unknown]
  - Neurological procedural complication [Not Recovered/Not Resolved]

NARRATIVE: CASE EVENT DATE: 20160101
